FAERS Safety Report 13027621 (Version 2)
Quarter: 2017Q1

REPORT INFORMATION
  Report Type: Spontaneous
  Country: KR (occurrence: KR)
  Receive Date: 20161214
  Receipt Date: 20170104
  Transmission Date: 20170428
  Serious: Yes (Other)
  Sender: FDA-Public Use
  Company Number: KR-CELGENEUS-KOR-2016120481

PATIENT
  Age: 73 Year
  Sex: Male

DRUGS (7)
  1. FENTANYL. [Concomitant]
     Active Substance: FENTANYL
     Indication: PAIN
     Route: 062
     Dates: start: 20160825
  2. MEGESTEROL [Concomitant]
     Indication: DECREASED APPETITE
     Dosage: 20 MILLIGRAM
     Route: 048
     Dates: start: 20160825
  3. DEXAMETHASONE. [Concomitant]
     Active Substance: DEXAMETHASONE
     Indication: ANTIEMETIC SUPPORTIVE CARE
     Dosage: 10 MILLIGRAM
     Route: 041
     Dates: start: 20160825, end: 20160825
  4. PALONOSETRON [Concomitant]
     Active Substance: PALONOSETRON
     Indication: ANTIEMETIC SUPPORTIVE CARE
     Dosage: .25 MILLIGRAM
     Route: 041
     Dates: start: 20160825, end: 20160825
  5. ABRAXANE [Suspect]
     Active Substance: PACLITAXEL
     Indication: PANCREATIC CARCINOMA
     Route: 041
     Dates: start: 20160825, end: 20160825
  6. OXYCODONE/NALOXONE [Concomitant]
     Active Substance: NALOXONE HYDROCHLORIDE\OXYCODONE HYDROCHLORIDE
     Indication: PAIN
     Dosage: 10.5 MILLIGRAM
     Route: 048
     Dates: start: 20160818
  7. GEMCITABINE [Concomitant]
     Active Substance: GEMCITABINE\GEMCITABINE HYDROCHLORIDE
     Indication: CHEMOTHERAPY
     Dosage: 1140 MILLIGRAM
     Route: 041
     Dates: start: 20160825, end: 20160825

REACTIONS (2)
  - Pancreatic carcinoma [Unknown]
  - Blindness [Recovering/Resolving]
